FAERS Safety Report 9198360 (Version 7)
Quarter: 2013Q4

REPORT INFORMATION
  Report Type: Spontaneous
  Country: BR (occurrence: BR)
  Receive Date: 20130329
  Receipt Date: 20131223
  Transmission Date: 20140711
  Serious: Yes (Hospitalization, Other)
  Sender: FDA-Public Use
  Company Number: BR-PFIZER INC-2013084258

PATIENT
  Age: 56 Year
  Sex: Female
  Weight: 65 kg

DRUGS (12)
  1. SUTENT [Suspect]
     Indication: RENAL CELL CARCINOMA
     Dosage: 50 MG, CYCLIC ONCE DAILY (CYCLE 2 PER 1)
     Route: 048
     Dates: start: 20130306
  2. ENALAPRIL [Concomitant]
     Dosage: UNK
  3. HYDROCHLOROTHIAZIDE [Concomitant]
     Indication: HYPERTENSION
     Dosage: 25 MG, 3X/DAY
  4. HYDROCHLOROTHIAZIDE [Concomitant]
     Dosage: 25 MG, 2X/DAY
  5. METFORMIN [Concomitant]
     Indication: DIABETES MELLITUS
     Dosage: 850 MG, 3X/DAY
  6. METFORMIN [Concomitant]
     Dosage: 150 MG, 1X/DAY
  7. OMEPRAZOLE [Concomitant]
     Dosage: UNK, 1X/DAY IN FASTING
  8. HEXOMEDINE SPRAY [Concomitant]
     Dosage: UNK, AS NEEDED
  9. NISTATIN [Concomitant]
     Dosage: UNK, 4X/DAY (EVERY 6 HOURS)
  10. LOSARTAN [Concomitant]
     Dosage: 100 MG, 1X/DAY
  11. AAS [Concomitant]
     Dosage: UNK, 1X/DAY (AT LUNCH)
  12. FLOGORAL [Concomitant]

REACTIONS (30)
  - Pulmonary embolism [Unknown]
  - Blood pressure increased [Not Recovered/Not Resolved]
  - Blood pressure decreased [Recovered/Resolved]
  - Pulmonary fistula [Unknown]
  - Blood pressure increased [Recovered/Resolved]
  - Blood pressure increased [Unknown]
  - Headache [Not Recovered/Not Resolved]
  - Yellow skin [Unknown]
  - Lymph node pain [Unknown]
  - Dyspnoea [Unknown]
  - Fatigue [Not Recovered/Not Resolved]
  - Oral pain [Unknown]
  - Burning sensation [Unknown]
  - Pruritus [Not Recovered/Not Resolved]
  - Pain [Not Recovered/Not Resolved]
  - Skin atrophy [Not Recovered/Not Resolved]
  - Genital burning sensation [Not Recovered/Not Resolved]
  - Genital erythema [Not Recovered/Not Resolved]
  - Strangury [Not Recovered/Not Resolved]
  - Ageusia [Not Recovered/Not Resolved]
  - Rhinalgia [Unknown]
  - Blood pressure decreased [Unknown]
  - Dyspnoea [Not Recovered/Not Resolved]
  - Pleuritic pain [Unknown]
  - Respiratory rate increased [Unknown]
  - Atelectasis [Unknown]
  - Disease progression [Unknown]
  - Renal cell carcinoma [Unknown]
  - Parosmia [Not Recovered/Not Resolved]
  - Malaise [Not Recovered/Not Resolved]
